FAERS Safety Report 4996158-6 (Version None)
Quarter: 2006Q2

REPORT INFORMATION
  Report Type: 
  Country: None (occurrence: None)
  Receive Date: 20060504
  Receipt Date: 20060420
  Transmission Date: 20061013
  Serious: Yes (Death)
  Sender: FDA-Public Use
  Company Number: 2006-DE-02033GD

PATIENT
  Age: 18 Year
  Sex: Female

DRUGS (2)
  1. PREDNISONE TAB [Suspect]
     Indication: HYPERTHYROIDISM
     Dosage: 0.5 MG/KG (OR IN ABSENCE OF RAPID THERAPEUTIC RESPONSE INCREASED TO 1 MG/KG)
  2. AMIODARONE HYDROCHLORIDE [Suspect]
     Indication: ATRIAL FIBRILLATION
     Dosage: 200 MG (NR), NR

REACTIONS (1)
  - CARDIAC PROCEDURE COMPLICATION [None]
